FAERS Safety Report 23300800 (Version 1)
Quarter: 2023Q4

REPORT INFORMATION
  Report Type: Spontaneous
  Country: HK (occurrence: HK)
  Receive Date: 20231215
  Receipt Date: 20231215
  Transmission Date: 20240110
  Serious: Yes (Other)
  Sender: FDA-Public Use
  Company Number: HK-BAYER-2023A175817

PATIENT
  Age: 75 Year
  Sex: Male

DRUGS (3)
  1. EYLEA [Suspect]
     Active Substance: AFLIBERCEPT
     Indication: Neovascular age-related macular degeneration
     Dosage: UNK LASTED FOR 3 MONTHS, THEN EXTENDED BY 2-WEEK INTERVALS TO Q16; 40MG/ML
     Route: 031
  2. EYLEA [Suspect]
     Active Substance: AFLIBERCEPT
     Dosage: Q4-6 WEEKS; 40MG/ML
     Route: 031
  3. BROLUCIZUMAB [Suspect]
     Active Substance: BROLUCIZUMAB
     Indication: Product used for unknown indication

REACTIONS (7)
  - Sudden visual loss [Unknown]
  - Retinal pigment epitheliopathy [Unknown]
  - Retinal haemorrhage [Unknown]
  - Visual impairment [Unknown]
  - Visual impairment [Unknown]
  - Inappropriate schedule of product administration [Unknown]
  - Product prescribing issue [Unknown]
